FAERS Safety Report 20461139 (Version 1)
Quarter: 2022Q1

REPORT INFORMATION
  Report Type: Spontaneous
  Country: RS (occurrence: RS)
  Receive Date: 20220211
  Receipt Date: 20220211
  Transmission Date: 20220424
  Serious: Yes (Death)
  Sender: FDA-Public Use
  Company Number: RS-PFIZER INC-202200171564

PATIENT
  Sex: Male

DRUGS (4)
  1. PIPERACILLIN SODIUM\TAZOBACTAM SODIUM [Suspect]
     Active Substance: PIPERACILLIN SODIUM\TAZOBACTAM SODIUM
  2. AMPICILLIN [Concomitant]
     Active Substance: AMPICILLIN
  3. GENTAMICIN [Concomitant]
     Active Substance: GENTAMICIN
  4. MEROPENEM [Concomitant]
     Active Substance: MEROPENEM

REACTIONS (2)
  - Haemorrhage intracranial [Fatal]
  - Pulmonary haemorrhage [Fatal]
